FAERS Safety Report 17988905 (Version 3)
Quarter: 2020Q3

REPORT INFORMATION
  Report Type: Spontaneous
  Country: US (occurrence: US)
  Receive Date: 20200707
  Receipt Date: 20200806
  Transmission Date: 20201103
  Serious: No
  Sender: FDA-Public Use
  Company Number: US-SA-2020SA171758

PATIENT

DRUGS (2)
  1. DUPIXENT [Suspect]
     Active Substance: DUPILUMAB
     Dosage: 300 MG, QOW
     Route: 058
     Dates: start: 20200624
  2. DUPIXENT [Suspect]
     Active Substance: DUPILUMAB
     Indication: DERMATITIS ATOPIC
     Dosage: 300 MG, 1X
     Route: 058
     Dates: start: 202006, end: 202006

REACTIONS (12)
  - Migraine [Unknown]
  - Headache [Unknown]
  - Periorbital swelling [Unknown]
  - Product use issue [Unknown]
  - Pruritus [Recovering/Resolving]
  - Colitis [Unknown]
  - Injection site discomfort [Unknown]
  - Sinusitis [Unknown]
  - Dehydration [Unknown]
  - Eye swelling [Unknown]
  - Ocular hyperaemia [Recovering/Resolving]
  - Abdominal pain [Unknown]

NARRATIVE: CASE EVENT DATE: 2020
